FAERS Safety Report 6122464-8 (Version None)
Quarter: 2009Q1

REPORT INFORMATION
  Report Type: 
  Country: None (occurrence: None)
  Receive Date: 20090318
  Receipt Date: 20090114
  Transmission Date: 20090719
  Serious: No
  Sender: FDA-Public Use
  Company Number: US-ASTRAZENECA-2008UW26754

PATIENT
  Age: 81 Year
  Sex: Female

DRUGS (1)
  1. SYMBICORT [Suspect]
     Indication: ASTHMA
     Dosage: 160/4.5 MCG 120 INHALATIONS 2 PUFFS TWICE A DAY
     Route: 055

REACTIONS (4)
  - APHONIA [None]
  - FEELING JITTERY [None]
  - HEADACHE [None]
  - OROPHARYNGEAL PAIN [None]
